FAERS Safety Report 8516471-5 (Version None)
Quarter: 2012Q3

REPORT INFORMATION
  Report Type: 
  Country: None (occurrence: None)
  Receive Date: 20120718
  Receipt Date: 20120711
  Transmission Date: 20120928
  Serious: No
  Sender: FDA-Public Use
  Company Number: US-PFIZER INC-2012168019

PATIENT
  Sex: Female
  Weight: 86.168 kg

DRUGS (5)
  1. TOVIAZ [Suspect]
     Indication: CYSTITIS INTERSTITIAL
  2. ATENOLOL [Concomitant]
     Indication: HYPERTENSION
  3. SIMVASTATIN [Concomitant]
     Indication: BLOOD CHOLESTEROL INCREASED
     Dosage: 25 MG, DAILY
  4. ATENOLOL [Concomitant]
     Indication: MITRAL VALVE PROLAPSE
     Dosage: 25 MG, DAILY
  5. TOVIAZ [Suspect]
     Indication: HYPERTONIC BLADDER
     Dosage: 8 MG, DAILY
     Dates: end: 20120701

REACTIONS (3)
  - DRUG INEFFECTIVE [None]
  - DISCOMFORT [None]
  - ABDOMINAL DISCOMFORT [None]
